FAERS Safety Report 13102889 (Version 2)
Quarter: 2017Q1

REPORT INFORMATION
  Report Type: Report from Study
  Country: US (occurrence: US)
  Receive Date: 20170110
  Receipt Date: 20170228
  Transmission Date: 20170428
  Serious: Yes (Hospitalization)
  Sender: FDA-Public Use
  Company Number: US-ACTELION-A-US2016-142018

PATIENT
  Age: 53 Year
  Sex: Female
  Weight: 83.9 kg

DRUGS (4)
  1. REVATIO [Concomitant]
     Active Substance: SILDENAFIL CITRATE
  2. UPTRAVI [Suspect]
     Active Substance: SELEXIPAG
     Dosage: 1600 MCG, BID
     Route: 048
  3. LETAIRIS [Concomitant]
     Active Substance: AMBRISENTAN
  4. UPTRAVI [Suspect]
     Active Substance: SELEXIPAG
     Indication: PULMONARY ARTERIAL HYPERTENSION
     Dosage: 1200 MCG, BID
     Route: 048
     Dates: start: 20160721

REACTIONS (21)
  - Head injury [Unknown]
  - Facial pain [Unknown]
  - Abdominal distension [Unknown]
  - Sinusitis [Unknown]
  - Pulmonary congestion [Unknown]
  - Weight increased [Unknown]
  - Dizziness [Unknown]
  - Decreased appetite [Unknown]
  - Pulmonary arterial hypertension [Unknown]
  - Headache [Unknown]
  - Cough [Unknown]
  - Rhinorrhoea [Unknown]
  - Sinus congestion [Unknown]
  - Eye pain [Unknown]
  - Diarrhoea [Unknown]
  - Nausea [Unknown]
  - Vertigo [Unknown]
  - Pulmonary oedema [Unknown]
  - Nasopharyngitis [Unknown]
  - Asthenia [Unknown]
  - Disease progression [Unknown]
